FAERS Safety Report 22044391 (Version 1)
Quarter: 2023Q1

REPORT INFORMATION
  Report Type: Spontaneous
  Country: US (occurrence: None)
  Receive Date: 20230227
  Receipt Date: 20230227
  Transmission Date: 20230418
  Serious: Yes (Hospitalization)
  Sender: FDA-Public Use
  Company Number: None

PATIENT
  Sex: Male

DRUGS (1)
  1. CUVITRU [Suspect]
     Active Substance: HUMAN IMMUNOGLOBULIN G
     Indication: Immunodeficiency common variable
     Dosage: OTHER STRENGTH : 4GM/20ML;?OTHER QUANTITY : 4GM;?FREQUENCY : TWICE A WEEK;?
     Route: 058
     Dates: start: 202112, end: 20230202

REACTIONS (4)
  - Pneumonia [None]
  - Pulmonary embolism [None]
  - Deep vein thrombosis [None]
  - Thrombosis [None]
